FAERS Safety Report 19469976 (Version 1)
Quarter: 2021Q2

REPORT INFORMATION
  Report Type: Spontaneous
  Country: DE (occurrence: DE)
  Receive Date: 20210628
  Receipt Date: 20210628
  Transmission Date: 20210717
  Serious: Yes (Other)
  Sender: FDA-Public Use
  Company Number: DE-ASTRAZENECA-2021A564758

PATIENT
  Age: 66 Year
  Sex: Male

DRUGS (5)
  1. PREDNSIOLON [Concomitant]
  2. ACC [Concomitant]
     Active Substance: ACETYLCYSTEINE
     Dosage: 600
  3. DAXAS [Suspect]
     Active Substance: ROFLUMILAST
     Indication: CHRONIC OBSTRUCTIVE PULMONARY DISEASE
     Route: 048
  4. ULTIBRO [Concomitant]
     Active Substance: GLYCOPYRRONIUM\INDACATEROL
     Dosage: EVERY MORNING
  5. BERODUAL [Concomitant]
     Active Substance: FENOTEROL HYDROBROMIDE\IPRATROPIUM BROMIDE
     Dosage: 1 DOSE AS NEEDED AT DYSPNOEA (UP TO 6 TIMES A DAY)

REACTIONS (1)
  - Chronic obstructive pulmonary disease [Unknown]
